FAERS Safety Report 7804629-X (Version None)
Quarter: 2011Q4

REPORT INFORMATION
  Report Type: 
  Country: None (occurrence: None)
  Receive Date: 20111010
  Receipt Date: 20111007
  Transmission Date: 20120403
  Serious: No
  Sender: FDA-Public Use
  Company Number: US-PFIZER INC-2011240437

PATIENT
  Sex: Female
  Weight: 53.968 kg

DRUGS (2)
  1. CALTRATE 600+D [Concomitant]
     Indication: BONE DISORDER
     Dosage: UNK, 2X/DAY
  2. FLUCONAZOLE [Suspect]
     Indication: FUNGAL INFECTION
     Dosage: 200 MG, DAILY
     Dates: start: 20110701, end: 20110801

REACTIONS (1)
  - ALOPECIA [None]
